FAERS Safety Report 4831596-3 (Version None)
Quarter: 2005Q4

REPORT INFORMATION
  Report Type: 
  Country: None (occurrence: None)
  Receive Date: 20051116
  Receipt Date: 20051103
  Transmission Date: 20060501
  Serious: Yes (Hospitalization, Other)
  Sender: FDA-Public Use
  Company Number: 2005151292

PATIENT
  Age: 43 Year
  Sex: Male
  Weight: 95.2554 kg

DRUGS (3)
  1. CELEBREX [Suspect]
     Indication: OSTEOARTHRITIS
     Dates: start: 20050705, end: 20050719
  2. DEPAKOTE [Concomitant]
  3. EFFEXOR XR [Concomitant]

REACTIONS (6)
  - CHEST PAIN [None]
  - DRUG INEFFECTIVE [None]
  - ELECTROCARDIOGRAM T WAVE AMPLITUDE DECREASED [None]
  - PAIN IN EXTREMITY [None]
  - PARAESTHESIA [None]
  - STRESS [None]
